FAERS Safety Report 25854868 (Version 1)
Quarter: 2025Q3

REPORT INFORMATION
  Report Type: Spontaneous
  Country: US (occurrence: US)
  Receive Date: 20250927
  Receipt Date: 20250927
  Transmission Date: 20251020
  Serious: No
  Sender: SANOFI AVENTIS
  Company Number: US-SA-2025SA286762

PATIENT
  Sex: Female

DRUGS (8)
  1. KEVZARA [Suspect]
     Active Substance: SARILUMAB
     Indication: Essential hypertension
     Dosage: 200 MG, QOW
     Route: 058
  2. AZATHIOPRINE [Concomitant]
     Active Substance: AZATHIOPRINE
  3. HYDROCHLOROTHIAZIDE [Concomitant]
     Active Substance: HYDROCHLOROTHIAZIDE
  4. LISINOPRIL [Concomitant]
     Active Substance: LISINOPRIL
  5. PANTOPRAZOLE [Concomitant]
     Active Substance: PANTOPRAZOLE
  6. PREDNISONE [Concomitant]
     Active Substance: PREDNISONE
  7. ROSUVASTATIN [Concomitant]
     Active Substance: ROSUVASTATIN
  8. TRAMADOL HCL [Concomitant]
     Active Substance: TRAMADOL HYDROCHLORIDE

REACTIONS (3)
  - Malaise [Not Recovered/Not Resolved]
  - Gastrointestinal disorder [Not Recovered/Not Resolved]
  - Product use in unapproved indication [Unknown]
